FAERS Safety Report 6450167-9 (Version None)
Quarter: 2009Q4

REPORT INFORMATION
  Report Type: 
  Country: None (occurrence: None)
  Receive Date: 20091123
  Receipt Date: 20091113
  Transmission Date: 20100525
  Serious: Yes (Death)
  Sender: FDA-Public Use
  Company Number: US-MYLANLABS-2009S1019981

PATIENT
  Age: 35 Year
  Sex: Male

DRUGS (7)
  1. FENTANYL CITRATE [Suspect]
     Indication: BACK PAIN
     Dosage: CHANGED Q72H
     Route: 062
     Dates: start: 20091029, end: 20091102
  2. OXYCODONE HCL AND ACETAMINOPHEN [Suspect]
     Indication: PAIN
     Route: 048
     Dates: start: 20090101, end: 20090301
  3. OXYCODONE HCL AND ACETAMINOPHEN [Suspect]
     Route: 048
     Dates: start: 20090101, end: 20090301
  4. LYRICA [Suspect]
     Indication: PAIN
     Route: 048
     Dates: start: 20091010
  5. ZOLPIDEM [Suspect]
     Indication: INSOMNIA
     Route: 048
     Dates: start: 20091027
  6. TRIFLUOPERAZINE HYDROCHLORIDE TABLETS, USP [Suspect]
     Indication: SCHIZOPHRENIA
     Route: 048
     Dates: end: 20090801
  7. OXYCONTIN [Suspect]
     Indication: PAIN
     Route: 048
     Dates: end: 20090301

REACTIONS (1)
  - DEATH [None]
